FAERS Safety Report 15873920 (Version 1)
Quarter: 2019Q1

REPORT INFORMATION
  Report Type: Other
  Country: US (occurrence: US)
  Receive Date: 20190126
  Receipt Date: 20190126
  Transmission Date: 20190417
  Serious: Yes (Other)
  Sender: FDA-Public Use
  Company Number: US-ACORDA-ACO_151687_2018

PATIENT
  Sex: Female

DRUGS (1)
  1. AMPYRA [Suspect]
     Active Substance: DALFAMPRIDINE
     Indication: PRODUCT USED FOR UNKNOWN INDICATION
     Dosage: 10 MG, BID
     Route: 065

REACTIONS (6)
  - Diplegia [Unknown]
  - Fatigue [Unknown]
  - Urinary incontinence [Unknown]
  - Motor dysfunction [Unknown]
  - Secondary progressive multiple sclerosis [Unknown]
  - Heat exhaustion [Unknown]
